FAERS Safety Report 20709692 (Version 1)
Quarter: 2022Q2

REPORT INFORMATION
  Report Type: Spontaneous
  Country: None (occurrence: US)
  Receive Date: 20220414
  Receipt Date: 20220414
  Transmission Date: 20220721
  Serious: Yes (Hospitalization)
  Sender: FDA-Public Use
  Company Number: US-ITALFARMACO SPA-2127756

PATIENT
  Age: 52 Year
  Sex: Male

DRUGS (10)
  1. TIGLUTIK [Suspect]
     Active Substance: RILUZOLE
     Indication: Amyotrophic lateral sclerosis
     Route: 048
     Dates: start: 20220314
  2. ALBUTEROL [Concomitant]
     Active Substance: ALBUTEROL
  3. CLONAZEPAM [Concomitant]
     Active Substance: CLONAZEPAM
  4. OLANZAPINE [Concomitant]
     Active Substance: OLANZAPINE
  5. OMEPRAZOLE [Concomitant]
     Active Substance: OMEPRAZOLE
  6. VITAMIN D [Concomitant]
     Active Substance: VITAMIN D NOS
  7. ONDANSETRON [Concomitant]
     Active Substance: ONDANSETRON
  8. DULOXETINE [Concomitant]
     Active Substance: DULOXETINE
  9. MELATONIN [Concomitant]
     Active Substance: MELATONIN
  10. PERCOCET-5 (ACETYLSALICYLIC ACID, OXYCODONE HYDROCHLORIDE, OXYCODONE T [Concomitant]

REACTIONS (1)
  - Pneumonia [Recovering/Resolving]
